FAERS Safety Report 12488409 (Version 1)
Quarter: 2016Q2

REPORT INFORMATION
  Report Type: Spontaneous
  Country: US (occurrence: US)
  Receive Date: 20160622
  Receipt Date: 20160622
  Transmission Date: 20160815
  Serious: Yes (Other)
  Sender: FDA-Public Use
  Company Number: US-RARE DISEASE THERAPEUTICS, INC.-1054168

PATIENT
  Age: 27 Year
  Sex: Female
  Weight: 144 kg

DRUGS (24)
  1. LISINOPRIL. [Concomitant]
     Active Substance: LISINOPRIL
  2. LORAZEPAM. [Concomitant]
     Active Substance: LORAZEPAM
  3. NAPROXEN. [Concomitant]
     Active Substance: NAPROXEN
  4. PROPRANOLOL [Concomitant]
     Active Substance: PROPRANOLOL\PROPRANOLOL HYDROCHLORIDE
  5. ATROVENT HFA [Concomitant]
     Active Substance: IPRATROPIUM BROMIDE
  6. FOLIC ACID. [Concomitant]
     Active Substance: FOLIC ACID
  7. LOTRIMIN AF ANTIFUNGAL [Concomitant]
     Active Substance: MICONAZOLE NITRATE
  8. MUCINEX DM [Concomitant]
     Active Substance: DEXTROMETHORPHAN HYDROBROMIDE\GUAIFENESIN
  9. OMEPRAZOLE. [Concomitant]
     Active Substance: OMEPRAZOLE
  10. CYSTADANE [Suspect]
     Active Substance: BETAINE
     Indication: HOMOCYSTINURIA
     Dates: start: 20150619
  11. PAROXETINE. [Concomitant]
     Active Substance: PAROXETINE
  12. SYMBICORT [Concomitant]
     Active Substance: BUDESONIDE\FORMOTEROL FUMARATE DIHYDRATE
  13. GLIPIZIDE. [Concomitant]
     Active Substance: GLIPIZIDE
  14. ASPIRIN. [Concomitant]
     Active Substance: ASPIRIN
  15. OS-CAL + D [Concomitant]
  16. SPIRIVA [Concomitant]
     Active Substance: TIOTROPIUM BROMIDE MONOHYDRATE
  17. BACTROBAN [Concomitant]
     Active Substance: MUPIROCIN\MUPIROCIN CALCIUM
  18. CLINDAMYCIN [Concomitant]
     Active Substance: CLINDAMYCIN\CLINDAMYCIN PHOSPHATE
  19. METANX [Concomitant]
     Active Substance: LEVOMEFOLATE CALCIUM\METHYLCOBALAMIN\PYRIDOXAL PHOSPHATE ANHYDROUS
  20. VERAPAMIL [Concomitant]
     Active Substance: VERAPAMIL HYDROCHLORIDE
  21. DOXYCYCLINE. [Concomitant]
     Active Substance: DOXYCYCLINE
  22. FLUNISOLIDE. [Concomitant]
     Active Substance: FLUNISOLIDE
  23. PREDNISONE. [Concomitant]
     Active Substance: PREDNISONE
  24. PROAIR HFA [Concomitant]
     Active Substance: ALBUTEROL SULFATE

REACTIONS (2)
  - Pneumonia [Not Recovered/Not Resolved]
  - Prescribed overdose [Unknown]
